FAERS Safety Report 21721108 (Version 5)
Quarter: 2023Q1

REPORT INFORMATION
  Report Type: Report from Study
  Country: US (occurrence: US)
  Receive Date: 20221213
  Receipt Date: 20230221
  Transmission Date: 20230417
  Serious: No
  Sender: FDA-Public Use
  Company Number: US-002147023-NVSC2022US284339

PATIENT
  Sex: Female

DRUGS (1)
  1. COSENTYX [Suspect]
     Active Substance: SECUKINUMAB
     Indication: Psoriatic arthropathy
     Dosage: UNK UNK, QMO
     Route: 058

REACTIONS (7)
  - Erythema [Unknown]
  - Pruritus [Unknown]
  - Pain [Recovering/Resolving]
  - Diarrhoea [Unknown]
  - Influenza [Unknown]
  - Skin haemorrhage [Unknown]
  - Skin fissures [Unknown]
